FAERS Safety Report 23673199 (Version 2)
Quarter: 2024Q2

REPORT INFORMATION
  Report Type: Spontaneous
  Country: US (occurrence: US)
  Receive Date: 20240326
  Receipt Date: 20240609
  Transmission Date: 20240715
  Serious: Yes (Hospitalization)
  Sender: FDA-Public Use
  Company Number: US-GLAXOSMITHKLINE-US2024035913

PATIENT

DRUGS (1)
  1. ATOVAQUONE [Suspect]
     Active Substance: ATOVAQUONE
     Indication: Heart transplant
     Dosage: 10 ML, QD (750 MG/5 ML SUS)
     Dates: start: 202401

REACTIONS (2)
  - Disease complication [Unknown]
  - Product use in unapproved indication [Unknown]
